FAERS Safety Report 25579603 (Version 1)
Quarter: 2025Q3

REPORT INFORMATION
  Report Type: Spontaneous
  Country: US (occurrence: US)
  Receive Date: 20250718
  Receipt Date: 20250718
  Transmission Date: 20251021
  Serious: No
  Sender: NOVO NORDISK
  Company Number: US-NOVOPROD-1274245

PATIENT
  Age: 42 Year
  Sex: Female

DRUGS (2)
  1. WEGOVY [Suspect]
     Active Substance: SEMAGLUTIDE
     Indication: Cardiac disorder
  2. WEGOVY [Suspect]
     Active Substance: SEMAGLUTIDE
     Indication: Weight control
     Dosage: 1.7 MG, QW(SATURDAY)
     Route: 058
     Dates: start: 20240520, end: 20240608

REACTIONS (3)
  - Hunger [Recovered/Resolved]
  - Nausea [Recovered/Resolved]
  - Injection site streaking [Recovered/Resolved]

NARRATIVE: CASE EVENT DATE: 20240720
